FAERS Safety Report 9223136 (Version 3)
Quarter: 2013Q2

REPORT INFORMATION
  Report Type: Report from Study
  Country: CN (occurrence: CN)
  Receive Date: 20130410
  Receipt Date: 20130611
  Transmission Date: 20140414
  Serious: Yes (Death)
  Sender: FDA-Public Use
  Company Number: CN-ROCHE-1211076

PATIENT
  Sex: 0

DRUGS (3)
  1. ALTEPLASE [Suspect]
     Indication: PERIPHERAL EMBOLISM
     Dosage: 2 BOLUSES OF 10 MG OF DILUTED IN 20 ML OF NORMAL SALINE SOLUTION
     Route: 013
  2. WARFARIN [Concomitant]
     Indication: ATRIAL FIBRILLATION
  3. HEPARIN [Concomitant]
     Route: 058

REACTIONS (2)
  - Cerebral artery embolism [Fatal]
  - Multi-organ failure [Fatal]
